FAERS Safety Report 21904008 (Version 4)
Quarter: 2024Q3

REPORT INFORMATION
  Report Type: Spontaneous
  Country: US (occurrence: US)
  Receive Date: 20230124
  Receipt Date: 20240809
  Transmission Date: 20241016
  Serious: Yes (Other)
  Sender: PFIZER
  Company Number: US-PFIZER INC-PV202300014004

PATIENT
  Age: 72 Year
  Sex: Male
  Weight: 103.85 kg

DRUGS (1)
  1. TIKOSYN [Suspect]
     Active Substance: DOFETILIDE
     Dosage: 500 UG, 2X/DAY
     Route: 048

REACTIONS (2)
  - Arrhythmic storm [Unknown]
  - Wrong strength [Unknown]
